FAERS Safety Report 5463754-1 (Version None)
Quarter: 2007Q3

REPORT INFORMATION
  Report Type: 
  Country: None (occurrence: None)
  Receive Date: 20070920
  Receipt Date: 20070917
  Transmission Date: 20080115
  Serious: No
  Sender: FDA-Public Use
  Company Number: US-BOEHRINGER INGELHEIM PHARMACEUTICALS, INC.-2007-BP-18949BP

PATIENT
  Age: 64 Year
  Sex: Male

DRUGS (1)
  1. FLOMAX [Suspect]
     Route: 048

REACTIONS (3)
  - ERECTILE DYSFUNCTION [None]
  - RETROGRADE EJACULATION [None]
  - SPERM COUNT DECREASED [None]
